FAERS Safety Report 7400642-5 (Version None)
Quarter: 2011Q2

REPORT INFORMATION
  Report Type: 
  Country: None (occurrence: None)
  Receive Date: 20110407
  Receipt Date: 20110218
  Transmission Date: 20111010
  Serious: Yes (Other)
  Sender: FDA-Public Use
  Company Number: FR-TEVA-253741ISR

PATIENT
  Sex: Male

DRUGS (5)
  1. COLECALCIFEROL [Concomitant]
     Indication: VITAMIN D
     Route: 048
     Dates: start: 20100501
  2. COPAXONE [Suspect]
     Indication: MULTIPLE SCLEROSIS
     Route: 058
     Dates: start: 20090610
  3. ESCITALOPRAM OXALATE [Concomitant]
     Indication: DEPRESSION
     Dosage: 0.5 TABLET OAD
     Route: 048
     Dates: start: 20091013
  4. VASERETIC [Concomitant]
     Indication: HYPERTENSION
     Route: 048
     Dates: start: 19870101
  5. OMEPRAZOLE [Concomitant]
     Indication: GASTROOESOPHAGEAL REFLUX DISEASE
     Route: 048
     Dates: start: 19930101

REACTIONS (1)
  - INJECTION SITE FIBROSIS [None]
